FAERS Safety Report 5095220-X (Version None)
Quarter: 2006Q3

REPORT INFORMATION
  Report Type: 
  Country: None (occurrence: None)
  Receive Date: 20060901
  Receipt Date: 20060821
  Transmission Date: 20061208
  Serious: Yes (Death, Life-Threatening, Hospitalization, Other)
  Sender: FDA-Public Use
  Company Number: GB-AVENTIS-200618844GDDC

PATIENT
  Age: 63 Year
  Sex: Female
  Weight: 45 kg

DRUGS (9)
  1. HYDROCORTISONE [Suspect]
     Route: 048
     Dates: start: 20051208, end: 20060122
  2. PREDNISOLONE [Suspect]
     Route: 048
     Dates: start: 20051118, end: 20060122
  3. REMICADE [Suspect]
     Route: 042
     Dates: start: 20051215, end: 20051215
  4. ATENOLOL [Concomitant]
     Route: 048
     Dates: start: 20051227
  5. CALCICHEW D3 [Concomitant]
     Route: 048
     Dates: start: 20051220, end: 20051227
  6. CLEXANE [Concomitant]
     Route: 058
     Dates: start: 20051208, end: 20051220
  7. FOSAMAX [Concomitant]
     Route: 048
     Dates: start: 20051220, end: 20051227
  8. SANDO K [Concomitant]
     Route: 048
     Dates: start: 20051219, end: 20051221
  9. SIMVASTATIN [Concomitant]
     Route: 048
     Dates: end: 20051227

REACTIONS (5)
  - ARTHRITIS BACTERIAL [None]
  - ISCHAEMIC STROKE [None]
  - PEPTIC ULCER HAEMORRHAGE [None]
  - PNEUMONIA STAPHYLOCOCCAL [None]
  - SEPSIS [None]
